FAERS Safety Report 9405349 (Version 3)
Quarter: 2013Q3

REPORT INFORMATION
  Report Type: Spontaneous
  Country: KW (occurrence: None)
  Receive Date: 20130703
  Receipt Date: 20130822
  Transmission Date: 20140515
  Serious: Yes (Other)
  Sender: FDA-Public Use
  Company Number: 2013036721

PATIENT
  Age: 12 Year
  Sex: Male

DRUGS (2)
  1. IMMUNOGLOBULIN [Suspect]
     Indication: PITYRIASIS LICHENOIDES ET VARIOLIFORMIS ACUTA
     Dosage: 400 MG/KG QD, INTRAVENOUS (NOT OTHERWISE SPECIFIED)
     Route: 042
  2. CLARITHROMYCIN (CLARITHROMYCIN)? [Concomitant]

REACTIONS (4)
  - Anaphylactic reaction [None]
  - Off label use [None]
  - Alanine aminotransferase increased [None]
  - Aspartate aminotransferase increased [None]
